FAERS Safety Report 23641130 (Version 2)
Quarter: 2024Q1

REPORT INFORMATION
  Report Type: Spontaneous
  Country: CN (occurrence: CN)
  Receive Date: 20240318
  Receipt Date: 20240327
  Transmission Date: 20240410
  Serious: Yes (Hospitalization, Other)
  Sender: FDA-Public Use
  Company Number: CN-Accord-413131

PATIENT
  Age: 65 Year
  Sex: Male

DRUGS (4)
  1. AZACITIDINE [Suspect]
     Active Substance: AZACITIDINE
     Indication: Angioimmunoblastic T-cell lymphoma
     Dates: start: 202205
  2. TUCIDINOSTAT [Suspect]
     Active Substance: TUCIDINOSTAT
     Indication: Angioimmunoblastic T-cell lymphoma
     Route: 048
     Dates: start: 202205
  3. LENALIDOMIDE [Suspect]
     Active Substance: LENALIDOMIDE
     Indication: Immunomodulatory therapy
     Dates: start: 201905, end: 202204
  4. RITUXIMAB [Suspect]
     Active Substance: RITUXIMAB
     Indication: Targeted cancer therapy
     Dates: start: 201905, end: 202204

REACTIONS (1)
  - Polyomavirus-associated nephropathy [Recovering/Resolving]

NARRATIVE: CASE EVENT DATE: 20220401
